FAERS Safety Report 8184353-7 (Version None)
Quarter: 2012Q1

REPORT INFORMATION
  Report Type: 
  Country: None (occurrence: None)
  Receive Date: 20120305
  Receipt Date: 20120221
  Transmission Date: 20120608
  Serious: Yes (Hospitalization, Other)
  Sender: FDA-Public Use
  Company Number: US-ELI_LILLY_AND_COMPANY-US200910007682

PATIENT
  Sex: Female

DRUGS (3)
  1. ZYPREXA [Suspect]
     Dosage: 1 D/F, UNK
  2. ADVAIR DISKUS 100/50 [Concomitant]
  3. LEXAPRO [Concomitant]

REACTIONS (10)
  - RENAL FAILURE [None]
  - PANCREATITIS [None]
  - HAEMATURIA [None]
  - WEIGHT INCREASED [None]
  - PANCREATITIS ACUTE [None]
  - DIABETES MELLITUS [None]
  - DIABETIC KETOACIDOSIS [None]
  - RENAL CYST [None]
  - HYPERTENSION [None]
  - SLEEP APNOEA SYNDROME [None]
